FAERS Safety Report 8924744 (Version 1)
Quarter: 2012Q4

REPORT INFORMATION
  Report Type: 
  Country: US (occurrence: US)
  Receive Date: 20121126
  Receipt Date: 20121126
  Transmission Date: 20130627
  Serious: No
  Sender: FDA-Public Use
  Company Number: US-PFIZER INC-2012292615

PATIENT
  Age: 79 Year
  Sex: Female

DRUGS (1)
  1. VFEND [Suspect]
     Indication: ASPERGILLOSIS
     Dosage: 1-200 mg, 2x/day
     Dates: start: 20120614

REACTIONS (1)
  - White blood cell count decreased [Recovering/Resolving]
